FAERS Safety Report 13159282 (Version 2)
Quarter: 2019Q2

REPORT INFORMATION
  Report Type: Report from Study
  Country: US (occurrence: US)
  Receive Date: 20170127
  Receipt Date: 20190523
  Transmission Date: 20190711
  Serious: Yes (Other)
  Sender: FDA-Public Use
  Company Number: US-SA-2015SA185261

PATIENT
  Age: 43 Year
  Sex: Female

DRUGS (3)
  1. ALEMTUZUMAB [Suspect]
     Active Substance: ALEMTUZUMAB
     Indication: MULTIPLE SCLEROSIS
     Dosage: 12 MG,QD
     Route: 041
     Dates: start: 20151130, end: 20151204
  2. TOPAMAX [Concomitant]
     Active Substance: TOPIRAMATE
     Dosage: UNK
  3. ACICLOVIR [Concomitant]
     Active Substance: ACYCLOVIR
     Dosage: UNK UNK,BID

REACTIONS (21)
  - Pain [Recovering/Resolving]
  - Dysphonia [Not Recovered/Not Resolved]
  - Neoplasm malignant [Unknown]
  - Feeling abnormal [Recovered/Resolved]
  - Rash [Recovering/Resolving]
  - Feeling abnormal [Recovering/Resolving]
  - Cough [Recovering/Resolving]
  - Infection [Not Recovered/Not Resolved]
  - Malaise [Not Recovered/Not Resolved]
  - Skin cosmetic procedure [Recovered/Resolved]
  - Wound infection [Recovering/Resolving]
  - Bone disorder [Not Recovered/Not Resolved]
  - Viral infection [Recovering/Resolving]
  - Bone pain [Not Recovered/Not Resolved]
  - Respiratory tract congestion [Recovering/Resolving]
  - Skin disorder [Recovered/Resolved]
  - Memory impairment [Not Recovered/Not Resolved]
  - Fatigue [Not Recovered/Not Resolved]
  - Alopecia [Unknown]
  - Hyperhidrosis [Recovered/Resolved]
  - Surgery [Recovered/Resolved]

NARRATIVE: CASE EVENT DATE: 2015
